FAERS Safety Report 16632467 (Version 1)
Quarter: 2019Q3

REPORT INFORMATION
  Report Type: Spontaneous
  Country: US (occurrence: US)
  Receive Date: 20190725
  Receipt Date: 20190725
  Transmission Date: 20191004
  Serious: Yes (Hospitalization)
  Sender: FDA-Public Use
  Company Number: US-ABBVIE-19S-163-2692438-00

PATIENT
  Age: 57 Year
  Sex: Female
  Weight: 63 kg

DRUGS (7)
  1. PEPCID [Concomitant]
     Active Substance: FAMOTIDINE
     Indication: CARDIAC DISORDER
  2. SEREX [Concomitant]
     Indication: ANXIETY
  3. CITALOPRAM [Concomitant]
     Active Substance: CITALOPRAM HYDROBROMIDE
     Indication: DEPRESSION
  4. CLONAZEPAM. [Concomitant]
     Active Substance: CLONAZEPAM
     Indication: ANXIETY
  5. SYNTHROID [Suspect]
     Active Substance: LEVOTHYROXINE SODIUM
     Indication: THYROID DISORDER
     Route: 065
  6. EFFEXOR [Suspect]
     Active Substance: VENLAFAXINE HYDROCHLORIDE
     Indication: DEPRESSION
     Dosage: AT BEDTIME
     Route: 048
     Dates: start: 20180313, end: 20180319
  7. SYNTHROID [Suspect]
     Active Substance: LEVOTHYROXINE SODIUM
     Route: 065

REACTIONS (27)
  - Urinary tract infection [Recovered/Resolved]
  - Depression [Not Recovered/Not Resolved]
  - Gingival erythema [Recovering/Resolving]
  - Dry skin [Recovered/Resolved]
  - Back pain [Recovered/Resolved]
  - Incontinence [Recovered/Resolved]
  - Constipation [Unknown]
  - Aneurysm [Recovered/Resolved]
  - Heart rate increased [Recovered/Resolved]
  - Oesophageal irritation [Not Recovered/Not Resolved]
  - Weight decreased [Unknown]
  - Peptic ulcer [Not Recovered/Not Resolved]
  - Oesophageal oedema [Not Recovered/Not Resolved]
  - Dry eye [Recovered/Resolved]
  - Vision blurred [Recovered/Resolved]
  - Contusion [Recovered/Resolved]
  - Anxiety [Recovered/Resolved]
  - Confusional state [Recovered/Resolved]
  - Gingival swelling [Recovering/Resolving]
  - Lacrimation increased [Unknown]
  - Gingival discomfort [Recovering/Resolving]
  - Eye swelling [Recovered/Resolved]
  - Haemorrhoids [Unknown]
  - Oral herpes [Unknown]
  - Gingival disorder [Recovering/Resolving]
  - Gastrointestinal polyp [Recovered/Resolved]
  - Gastrointestinal disorder [Not Recovered/Not Resolved]

NARRATIVE: CASE EVENT DATE: 20180313
